FAERS Safety Report 13786573 (Version 1)
Quarter: 2017Q3

REPORT INFORMATION
  Report Type: Spontaneous
  Country: US (occurrence: US)
  Receive Date: 20170725
  Receipt Date: 20170725
  Transmission Date: 20171127
  Serious: No
  Sender: FDA-Public Use
  Company Number: US-JNJFOC-20170600199

PATIENT
  Sex: Female
  Weight: 81.19 kg

DRUGS (5)
  1. TYLENOL [Suspect]
     Active Substance: ACETAMINOPHEN
     Indication: ARTHRALGIA
     Dosage: 2-3 TIMES A DAY AS NEEDED
     Route: 048
  2. LOPRESSOR [Concomitant]
     Active Substance: METOPROLOL TARTRATE
     Indication: ARRHYTHMIA
     Route: 048
  3. TYLENOL [Suspect]
     Active Substance: ACETAMINOPHEN
     Route: 048
  4. XARELTO [Concomitant]
     Active Substance: RIVAROXABAN
     Indication: PHLEBITIS
     Route: 048
     Dates: start: 201702
  5. NEXIUM [Concomitant]
     Active Substance: ESOMEPRAZOLE MAGNESIUM
     Indication: GASTROOESOPHAGEAL REFLUX DISEASE
     Route: 048

REACTIONS (1)
  - Drug ineffective [Unknown]
